FAERS Safety Report 6671028-6 (Version None)
Quarter: 2010Q2

REPORT INFORMATION
  Report Type: 
  Country: None (occurrence: None)
  Receive Date: 20100407
  Receipt Date: 20100401
  Transmission Date: 20101027
  Serious: Yes (Death, Hospitalization)
  Sender: FDA-Public Use
  Company Number: PHHY2010DE19957

PATIENT
  Sex: Female
  Weight: 76 kg

DRUGS (1)
  1. CGS 20267 T30748+ [Suspect]
     Indication: BREAST CANCER
     Dosage: 2.5 MG, DAILY
     Route: 048
     Dates: start: 20090907, end: 20091023

REACTIONS (6)
  - ASCITES [None]
  - HEPATIC FAILURE [None]
  - LIP SWELLING [None]
  - METASTASES TO LIVER [None]
  - OEDEMA PERIPHERAL [None]
  - SWOLLEN TONGUE [None]
